FAERS Safety Report 9028792 (Version 1)
Quarter: 2013Q1

REPORT INFORMATION
  Report Type: Spontaneous
  Country: US (occurrence: US)
  Receive Date: 20130124
  Receipt Date: 20130124
  Transmission Date: 20140127
  Serious: No
  Sender: FDA-Public Use
  Company Number: US-BAUSCH-2012BL002675

PATIENT
  Age: 6 Year
  Sex: Female

DRUGS (1)
  1. ALAWAY [Suspect]
     Indication: HYPERSENSITIVITY
     Route: 047
     Dates: start: 20120404, end: 20120416

REACTIONS (3)
  - Rash [Recovering/Resolving]
  - Dry skin [Recovering/Resolving]
  - Erythema [Recovering/Resolving]
